FAERS Safety Report 11180260 (Version 17)
Quarter: 2020Q4

REPORT INFORMATION
  Report Type: Other
  Country: DE (occurrence: DE)
  Receive Date: 20150611
  Receipt Date: 20201214
  Transmission Date: 20210113
  Serious: Yes (Hospitalization, Other)
  Sender: FDA-Public Use
  Company Number: DE-ROCHE-1592562

PATIENT
  Age: 59 Year
  Sex: Male

DRUGS (19)
  1. OMEPRAZOLE. [Concomitant]
     Active Substance: OMEPRAZOLE
  2. ROACTEMRA [Suspect]
     Active Substance: TOCILIZUMAB
     Route: 058
  3. ROACTEMRA [Suspect]
     Active Substance: TOCILIZUMAB
     Route: 058
     Dates: start: 20200521
  4. NOVAMINSULFON [Concomitant]
     Active Substance: METAMIZOLE
     Route: 065
  5. ROACTEMRA [Suspect]
     Active Substance: TOCILIZUMAB
     Route: 058
     Dates: start: 202005, end: 20200528
  6. ASA [Concomitant]
     Active Substance: ASPIRIN
  7. SYNTESTAN [Concomitant]
     Active Substance: CLOPREDNOL
     Route: 065
  8. MORPHINE [Concomitant]
     Active Substance: MORPHINE
  9. ROACTEMRA [Suspect]
     Active Substance: TOCILIZUMAB
     Indication: RHEUMATOID ARTHRITIS
     Route: 058
     Dates: start: 20140801
  10. ROACTEMRA [Suspect]
     Active Substance: TOCILIZUMAB
     Route: 058
     Dates: start: 20090101, end: 20140701
  11. ROACTEMRA [Suspect]
     Active Substance: TOCILIZUMAB
     Indication: RHEUMATOID ARTHRITIS
     Route: 042
     Dates: start: 20090101, end: 20140701
  12. SYNTESTAN [Concomitant]
     Active Substance: CLOPREDNOL
     Route: 065
  13. NOVAMINSULFON [Concomitant]
     Active Substance: METAMIZOLE
     Route: 065
  14. ALENDRONIC ACID [Concomitant]
     Active Substance: ALENDRONIC ACID
     Dosage: AS BONE REGENERATION
     Route: 065
  15. BETAVERT [Suspect]
     Active Substance: BETAHISTINE
     Indication: PRODUCT USED FOR UNKNOWN INDICATION
     Route: 065
  16. BETAVERT [Suspect]
     Active Substance: BETAHISTINE
     Dosage: 30 MG AND 40 MG ALTERNATING
     Route: 065
  17. BUPRENORPHIN [Concomitant]
     Active Substance: BUPRENORPHINE
     Route: 065
  18. IDEOS [Concomitant]
     Active Substance: CALCIUM CARBONATE\CHOLECALCIFEROL
     Dosage: FOR SOFT TISSUE RHEUMATISM
     Route: 065
  19. BETAVERT [Suspect]
     Active Substance: BETAHISTINE
     Route: 065

REACTIONS (24)
  - Balance disorder [Recovering/Resolving]
  - Peripheral vein occlusion [Recovered/Resolved]
  - Rash [Not Recovered/Not Resolved]
  - Arthritis [Recovered/Resolved]
  - Arthralgia [Not Recovered/Not Resolved]
  - Limb injury [Recovering/Resolving]
  - Arthralgia [Recovered/Resolved]
  - Rheumatoid arthritis [Recovered/Resolved]
  - Peripheral swelling [Recovered/Resolved]
  - Blood iron increased [Recovered/Resolved]
  - Therapeutic product effect decreased [Unknown]
  - Deafness unilateral [Not Recovered/Not Resolved]
  - Fatigue [Recovered/Resolved]
  - Coccydynia [Not Recovered/Not Resolved]
  - Back pain [Unknown]
  - Syncope [Recovered/Resolved]
  - Diarrhoea [Recovered/Resolved]
  - Spinal pain [Recovered/Resolved]
  - Respiratory tract oedema [Recovered/Resolved]
  - Confusional state [Recovered/Resolved]
  - Nausea [Recovering/Resolving]
  - Hypertension [Not Recovered/Not Resolved]
  - Vasoconstriction [Not Recovered/Not Resolved]
  - Alopecia [Not Recovered/Not Resolved]

NARRATIVE: CASE EVENT DATE: 2009
